FAERS Safety Report 5804325-4 (Version None)
Quarter: 2008Q3

REPORT INFORMATION
  Report Type: 
  Country: None (occurrence: None)
  Receive Date: 20080707
  Receipt Date: 20080707
  Transmission Date: 20090109
  Serious: Yes (Hospitalization)
  Sender: FDA-Public Use
  Company Number: None

PATIENT
  Sex: Male
  Weight: 74.5 kg

DRUGS (2)
  1. MELPHALAN [Suspect]
     Dosage: 382 MG
     Dates: end: 20080329
  2. CYCLOPHOSPHAMIDE [Suspect]
     Dosage: 5730 MG
     Dates: end: 20080128

REACTIONS (3)
  - DYSPNOEA EXERTIONAL [None]
  - FATIGUE [None]
  - SINUS TACHYCARDIA [None]
